FAERS Safety Report 8916239 (Version 1)
Quarter: 2012Q4

REPORT INFORMATION
  Report Type: 
  Country: JP (occurrence: JP)
  Receive Date: 20121120
  Receipt Date: 20121120
  Transmission Date: 20130627
  Serious: Yes (Other)
  Sender: FDA-Public Use
  Company Number: JP-GLAXOSMITHKLINE-B0845765A

PATIENT
  Age: 3 None
  Sex: Female

DRUGS (2)
  1. LAMICTAL [Suspect]
     Indication: PERSONALITY DISORDER
     Dosage: 300MG Per day
     Route: 048
  2. LAMICTAL [Suspect]
     Indication: PERSONALITY DISORDER
     Dosage: 150MG Per day
     Route: 048

REACTIONS (2)
  - Oculogyric crisis [Unknown]
  - Strabismus [Recovered/Resolved]
